FAERS Safety Report 14254900 (Version 3)
Quarter: 2018Q1

REPORT INFORMATION
  Report Type: Spontaneous
  Country: ES (occurrence: ES)
  Receive Date: 20171206
  Receipt Date: 20180131
  Transmission Date: 20180508
  Serious: Yes (Life-Threatening, Hospitalization, Other)
  Sender: FDA-Public Use
  Company Number: ES-AUROBINDO-AUR-APL-2017-44494

PATIENT
  Age: 78 Year
  Sex: Female

DRUGS (13)
  1. LEVOFLOXACIN. [Suspect]
     Active Substance: LEVOFLOXACIN
     Dosage: 500 MG, BID
  2. PREDNISONE. [Concomitant]
     Active Substance: PREDNISONE
     Indication: ENCEPHALITIS AUTOIMMUNE
     Route: 048
  3. LEVOFLOXACIN. [Suspect]
     Active Substance: LEVOFLOXACIN
     Dosage: 500 MG, 1X/DAY
     Route: 042
  4. SERTRALINE [Concomitant]
     Active Substance: SERTRALINE HYDROCHLORIDE
     Indication: DEPRESSION
     Dosage: ()
     Route: 048
  5. LEVOFLOXACIN. [Suspect]
     Active Substance: LEVOFLOXACIN
     Dosage: 1ST DAY
     Route: 042
  6. LEVOFLOXACIN. [Suspect]
     Active Substance: LEVOFLOXACIN
     Dosage: 500 MG, BID
     Route: 042
  7. METHYLPREDNISOLONE. [Concomitant]
     Active Substance: METHYLPREDNISOLONE
     Indication: ENCEPHALITIS AUTOIMMUNE
     Route: 042
  8. LEVOFLOXACIN. [Suspect]
     Active Substance: LEVOFLOXACIN
     Dosage: 5000 MG, 1D
     Route: 042
  9. ENOXAPARIN [Concomitant]
     Active Substance: ENOXAPARIN
     Indication: PRODUCT USED FOR UNKNOWN INDICATION
     Route: 058
  10. WARFARIN [Concomitant]
     Active Substance: WARFARIN
     Indication: PRODUCT USED FOR UNKNOWN INDICATION
     Dosage: ()
  11. INFLUENZA VACCINE POLYVALENT [Concomitant]
     Indication: PROPHYLAXIS
     Dosage: ()
  12. LEVOFLOXACIN. [Suspect]
     Active Substance: LEVOFLOXACIN
     Indication: MENINGOENCEPHALITIS HERPETIC
     Dosage: 500 MG, NEXT 14 DAY
     Route: 042
  13. ACICLOVIR [Suspect]
     Active Substance: ACYCLOVIR
     Indication: ENCEPHALITIS AUTOIMMUNE
     Route: 042

REACTIONS (26)
  - Speech disorder [Recovered/Resolved]
  - Disorientation [Recovered/Resolved]
  - Movement disorder [Recovered/Resolved]
  - Factor XIII deficiency [Recovered/Resolved]
  - Nervous system disorder [Recovered/Resolved]
  - Haemorrhagic disorder [Recovered/Resolved]
  - Gait disturbance [Recovered/Resolved]
  - Pyrexia [Recovered/Resolved]
  - Encephalitis autoimmune [Recovered/Resolved]
  - Meningitis aseptic [Recovered/Resolved]
  - Peripheral swelling [Recovered/Resolved]
  - Herpes simplex encephalitis [Recovered/Resolved]
  - Partial seizures [Recovered/Resolved]
  - Factor XIII Inhibition [Recovered/Resolved]
  - Haemoglobin decreased [Recovered/Resolved]
  - Anaemia [Recovered/Resolved]
  - Condition aggravated [Recovered/Resolved]
  - Depression [Recovered/Resolved]
  - Coagulopathy [Recovered/Resolved]
  - Pleocytosis [Recovered/Resolved]
  - Aphasia [Recovered/Resolved]
  - Hemiparesis [Recovered/Resolved]
  - Pancytopenia [Recovered/Resolved]
  - Muscle haemorrhage [Recovered/Resolved]
  - Erythema [Recovered/Resolved]
  - Psychotic symptom [Recovered/Resolved]
